FAERS Safety Report 6016074-0 (Version None)
Quarter: 2008Q4

REPORT INFORMATION
  Report Type: 
  Country: None (occurrence: None)
  Receive Date: 20081222
  Receipt Date: 20081211
  Transmission Date: 20090506
  Serious: Yes (Death, Other)
  Sender: FDA-Public Use
  Company Number: US-MERCK-0805USA00699

PATIENT
  Age: 54 Year
  Sex: Female

DRUGS (1)
  1. FOSAMAX [Suspect]
     Route: 048

REACTIONS (6)
  - BREAST CANCER [None]
  - GASTROINTESTINAL HAEMORRHAGE [None]
  - LUNG NEOPLASM MALIGNANT [None]
  - MULTIPLE MYELOMA [None]
  - OSTEONECROSIS [None]
  - PNEUMONIA [None]
